FAERS Safety Report 10037194 (Version 1)
Quarter: 2014Q1

REPORT INFORMATION
  Report Type: Spontaneous
  Country: FR (occurrence: FR)
  Receive Date: 20140326
  Receipt Date: 20140326
  Transmission Date: 20141002
  Serious: Yes (Other)
  Sender: FDA-Public Use
  Company Number: PHHY2014FR034649

PATIENT
  Age: 78 Year
  Sex: Female

DRUGS (3)
  1. ACLASTA [Suspect]
     Indication: OSTEOPOROSIS
     Dosage: UNK
     Route: 042
     Dates: start: 2010
  2. TEMESTA [Concomitant]
     Indication: INSOMNIA
     Dosage: 0.5 DF, UNK
     Route: 048
     Dates: start: 1984
  3. MULTIVITAMIN//VITAMINS NOS [Concomitant]
     Dosage: UNK

REACTIONS (4)
  - Breast cancer recurrent [Recovered/Resolved]
  - Memory impairment [Not Recovered/Not Resolved]
  - Disturbance in attention [Not Recovered/Not Resolved]
  - Bone density decreased [Unknown]
